FAERS Safety Report 10215217 (Version 1)
Quarter: 2014Q2

REPORT INFORMATION
  Report Type: Report from Study
  Country: US (occurrence: US)
  Receive Date: 20140603
  Receipt Date: 20140603
  Transmission Date: 20141212
  Serious: No
  Sender: FDA-Public Use
  Company Number: PHEH2014US010997

PATIENT
  Sex: Male
  Weight: 104.31 kg

DRUGS (4)
  1. TASIGNA [Suspect]
     Indication: CHRONIC MYELOID LEUKAEMIA
     Dosage: 300 MG, BID
     Route: 048
     Dates: start: 20140424
  2. TRIBENZOR [Concomitant]
     Dosage: UNK UKN, UNK
  3. ALLOPURINOL [Concomitant]
     Dosage: UNK UKN, UNK
  4. ATORVASTATIN CALCIUM [Concomitant]
     Dosage: UNK UKN, UNK

REACTIONS (2)
  - Fatigue [Recovering/Resolving]
  - Pain in extremity [Recovering/Resolving]
